FAERS Safety Report 4346802-1 (Version None)
Quarter: 2004Q1

REPORT INFORMATION
  Report Type: 
  Country: None (occurrence: None)
  Receive Date: 20040329
  Receipt Date: 20031215
  Transmission Date: 20041129
  Serious: No
  Sender: FDA-Public Use
  Company Number: USA031254710

PATIENT
  Age: 6 Year
  Sex: Male
  Weight: 31 kg

DRUGS (2)
  1. STRATTERA [Suspect]
     Indication: DISTURBANCE IN ATTENTION
     Dosage: 35 MG/DAY
     Dates: start: 20031101
  2. STRATTERA [Suspect]
     Indication: RESTLESSNESS
     Dosage: 35 MG/DAY
     Dates: start: 20031101

REACTIONS (8)
  - DECREASED APPETITE [None]
  - DRY MOUTH [None]
  - EMOTIONAL DISTRESS [None]
  - EYE DISORDER [None]
  - EYE IRRITATION [None]
  - LACRIMATION INCREASED [None]
  - MOOD SWINGS [None]
  - WEIGHT DECREASED [None]
